FAERS Safety Report 8725045 (Version 3)
Quarter: 2014Q1

REPORT INFORMATION
  Report Type: Spontaneous
  Country: US (occurrence: US)
  Receive Date: 20120815
  Receipt Date: 20140227
  Transmission Date: 20141002
  Serious: No
  Sender: FDA-Public Use
  Company Number: US-ASTRAZENECA-2012SE55388

PATIENT
  Age: 76 Year
  Sex: Female

DRUGS (17)
  1. BUDESONIDE [Suspect]
     Dosage: 0.5 MG/2ML, 2ML EVERY DAY
     Route: 055
  2. TOPROL XL [Suspect]
     Route: 048
     Dates: start: 20130219
  3. METOPROLOL TARTRATE [Suspect]
     Route: 065
  4. OMEPRAZOLE [Suspect]
     Route: 048
     Dates: start: 20130219
  5. COLACE [Concomitant]
     Route: 048
     Dates: start: 20100929
  6. CYCLOBENZAPRINE [Concomitant]
     Route: 048
     Dates: start: 20130617
  7. CYCLOBENZAPRINE [Concomitant]
     Route: 048
     Dates: start: 20131114
  8. DALIRESP [Concomitant]
     Route: 048
     Dates: start: 20130409
  9. DEBROX [Concomitant]
     Route: 050
     Dates: start: 20120822
  10. GUAIFENESIN [Concomitant]
     Route: 048
  11. HYDROCHLOROTHIAZIDE [Concomitant]
     Route: 048
     Dates: start: 20130813
  12. IPRATROPIUM ALBUTEROL [Concomitant]
     Dosage: 0.5 MG-3MG (2.5 MG BASE)/3 ML FOUR TIMES A DAY
     Route: 055
     Dates: start: 20130717
  13. KEFLEX [Concomitant]
     Route: 048
     Dates: start: 20140110
  14. OXYGEN INHALATION [Concomitant]
     Dosage: 2 LMP
     Route: 045
  15. VENTOLIN [Concomitant]
     Dosage: 2 PUFF BY 4-6 HOURS
     Route: 055
     Dates: start: 20120315
  16. VITAMIN D [Concomitant]
     Route: 048
     Dates: start: 20111011
  17. XANAX [Concomitant]
     Route: 048
     Dates: start: 20130717

REACTIONS (3)
  - Hearing impaired [Unknown]
  - Chronic obstructive pulmonary disease [Unknown]
  - Drug hypersensitivity [Unknown]
